FAERS Safety Report 13335058 (Version 1)
Quarter: 2017Q1

REPORT INFORMATION
  Report Type: Spontaneous
  Country: US (occurrence: US)
  Receive Date: 20170314
  Receipt Date: 20170314
  Transmission Date: 20170428
  Serious: Yes (Other)
  Sender: FDA-Public Use
  Company Number: US-MYLANLABS-2017M1015708

PATIENT

DRUGS (4)
  1. MIDAZOLAM [Concomitant]
     Active Substance: MIDAZOLAM HYDROCHLORIDE
     Indication: ANXIOLYTIC THERAPY
     Dosage: 2MG
     Route: 042
  2. LIDOCAINE. [Suspect]
     Active Substance: LIDOCAINE
     Indication: LOCAL ANAESTHESIA
     Dosage: 3ML OF 1.5%
     Route: 058
  3. EPINEPHRINE. [Concomitant]
     Active Substance: EPINEPHRINE
     Indication: PRODUCT USED FOR UNKNOWN INDICATION
     Dosage: 1:200,000
     Route: 058
  4. FENTANYL. [Concomitant]
     Active Substance: FENTANYL
     Indication: ANXIOLYTIC THERAPY
     Dosage: 100MICROG
     Route: 042

REACTIONS (3)
  - Dyspnoea [Unknown]
  - Hypotension [Recovered/Resolved]
  - Anaesthetic complication [Recovered/Resolved]
